FAERS Safety Report 11953832 (Version 3)
Quarter: 2017Q1

REPORT INFORMATION
  Report Type: Spontaneous
  Country: FR (occurrence: FR)
  Receive Date: 20160125
  Receipt Date: 20170310
  Transmission Date: 20170428
  Serious: Yes (Hospitalization)
  Sender: FDA-Public Use
  Company Number: FR-VERTEX PHARMACEUTICALS-2016-000347

PATIENT
  Age: 14 Year
  Sex: Female
  Weight: 54 kg

DRUGS (15)
  1. SERETIDE [Concomitant]
     Active Substance: FLUTICASONE PROPIONATE\SALMETEROL XINAFOATE
     Dosage: 125 MG, BID
  2. CIPROFLOXACIN. [Concomitant]
     Active Substance: CIPROFLOXACIN
  3. OMEPRAZOLE. [Concomitant]
     Active Substance: OMEPRAZOLE
     Dosage: UNK, QD
  4. COLIMYCIN [Concomitant]
     Active Substance: COLISTIMETHATE SODIUM
  5. DELURSAN [Concomitant]
     Active Substance: URSODIOL
     Dosage: 1 DF, BID
  6. OPTIMIZETTE [Concomitant]
     Active Substance: DESOGESTREL
     Dosage: 1 DF, QD
  7. CREON [Concomitant]
     Active Substance: PANCRELIPASE AMYLASE\PANCRELIPASE LIPASE\PANCRELIPASE PROTEASE
  8. ITRACONAZOLE. [Concomitant]
     Active Substance: ITRACONAZOLE
     Dosage: 300 MG, QD
  9. BACTRIM [Concomitant]
     Active Substance: SULFAMETHOXAZOLE\TRIMETHOPRIM
     Dosage: 1 DF, UNK
  10. KALYDECO [Suspect]
     Active Substance: IVACAFTOR
     Dosage: 150 MG, TWICE PER WEEK
     Route: 048
     Dates: start: 20160223
  11. KALYDECO [Suspect]
     Active Substance: IVACAFTOR
     Indication: CYSTIC FIBROSIS
     Dosage: 150 MG, TWICE PER WEEK
     Route: 048
     Dates: start: 20121003, end: 20160111
  12. CLARITINE [Concomitant]
     Active Substance: LORATADINE
     Dosage: 1 DF, QD
  13. UVEDOSE [Concomitant]
     Active Substance: CHOLECALCIFEROL
     Dosage: EVERY 3 MONTHS
  14. NASONEX [Concomitant]
     Active Substance: MOMETASONE FUROATE
     Dosage: A SPRAY IN EACH NASAL MORNING AND EVENING
  15. VENTOLIN [Concomitant]
     Active Substance: ALBUTEROL SULFATE
     Dosage: 2 DF, BID

REACTIONS (1)
  - Viral pericarditis [Unknown]

NARRATIVE: CASE EVENT DATE: 20160111
